FAERS Safety Report 6283787-5 (Version None)
Quarter: 2009Q3

REPORT INFORMATION
  Report Type: 
  Country: None (occurrence: None)
  Receive Date: 20090724
  Receipt Date: 20090717
  Transmission Date: 20100115
  Serious: Yes (Other)
  Sender: FDA-Public Use
  Company Number: US-ASTRAZENECA-2009SE05099

PATIENT
  Age: 6 Year
  Sex: Female

DRUGS (4)
  1. BUPIVACAINE [Suspect]
     Indication: ANAESTHESIA PROCEDURE
     Route: 008
  2. BUPIVACAINE [Suspect]
     Route: 008
  3. BUPIVACAINE [Suspect]
     Route: 008
  4. PHENOBARBITAL [Concomitant]
     Indication: CONVULSION

REACTIONS (1)
  - COMPLEX PARTIAL SEIZURES [None]
